FAERS Safety Report 19157643 (Version 1)
Quarter: 2021Q2

REPORT INFORMATION
  Report Type: Spontaneous
  Country: US (occurrence: US)
  Receive Date: 20210420
  Receipt Date: 20210420
  Transmission Date: 20210717
  Serious: No
  Sender: FDA-Public Use
  Company Number: US-GLAXOSMITHKLINE-USCH2021AMR020870

PATIENT
  Sex: Female
  Weight: 43.54 kg

DRUGS (2)
  1. ADVIL [Suspect]
     Active Substance: IBUPROFEN
     Indication: BREAST PAIN
  2. ADVIL [Suspect]
     Active Substance: IBUPROFEN
     Indication: LYMPH NODE PAIN
     Dosage: UNK

REACTIONS (3)
  - Drug ineffective for unapproved indication [Unknown]
  - Extra dose administered [Unknown]
  - Product use in unapproved indication [Unknown]
